FAERS Safety Report 17396269 (Version 1)
Quarter: 2020Q1

REPORT INFORMATION
  Report Type: Spontaneous
  Country: US (occurrence: US)
  Receive Date: 20200207
  Receipt Date: 20200207
  Transmission Date: 20200409
  Serious: Yes (Disabling)
  Sender: FDA-Public Use
  Company Number: None

PATIENT
  Age: 62 Year
  Sex: Female
  Weight: 60.75 kg

DRUGS (5)
  1. CALCIUM 600 + VITAMIN D (CALTRATE BRAND) [Concomitant]
  2. VENLAFAXINE HCL ER BONIVA (GENERIC) [Concomitant]
  3. VENLAFAXINE HCL [Suspect]
     Active Substance: VENLAFAXINE HYDROCHLORIDE
     Indication: DEPRESSION
     Dosage: ?          QUANTITY:1 CAPSULE(S);?
     Route: 048
  4. ALEVE [Concomitant]
     Active Substance: NAPROXEN SODIUM
  5. VENLAFAXINE HCL [Suspect]
     Active Substance: VENLAFAXINE HYDROCHLORIDE
     Indication: DISEASE RECURRENCE
     Dosage: ?          QUANTITY:1 CAPSULE(S);?
     Route: 048

REACTIONS (7)
  - Product quality issue [None]
  - Depression [None]
  - Manufacturing process control procedure issue [None]
  - Product substitution issue [None]
  - Disease recurrence [None]
  - Product label issue [None]
  - Therapeutic product effect decreased [None]

NARRATIVE: CASE EVENT DATE: 20190715
